FAERS Safety Report 7929553-3 (Version None)
Quarter: 2011Q4

REPORT INFORMATION
  Report Type: 
  Country: None (occurrence: None)
  Receive Date: 20111024
  Receipt Date: 20110815
  Transmission Date: 20120403
  Serious: Yes (Other)
  Sender: FDA-Public Use
  Company Number: 2011SP038733

PATIENT
  Age: 40 Year
  Sex: Female

DRUGS (1)
  1. DULERA ORAL INHALATION [Suspect]
     Indication: DYSPNOEA
     Dosage: INH
     Route: 055
     Dates: start: 20110701

REACTIONS (1)
  - CATARACT [None]
